FAERS Safety Report 6053856-3 (Version None)
Quarter: 2009Q1

REPORT INFORMATION
  Report Type: 
  Country: None (occurrence: None)
  Receive Date: 20090123
  Receipt Date: 20090116
  Transmission Date: 20090719
  Serious: Yes (Death)
  Sender: FDA-Public Use
  Company Number: 6048286

PATIENT
  Age: 71 Year
  Sex: Male

DRUGS (8)
  1. LEVOTHYROXINE SODIUM [Suspect]
     Indication: HYPOTHYROIDISM
     Dosage: 0.5 DOSAGE FORM, ORAL
     Route: 048
     Dates: start: 20080801
  2. CORDARONE [Suspect]
     Indication: DRUG USE FOR UNKNOWN INDICATION
     Dosage: ORAL INTAKE WAS INCREASED FROM 1 DOSAGE TO 2 DOSAGE FORMS ON 18 SEP 2008, 5/7 DAYS
     Route: 048
  3. ELISOR (40 MG, TABLET) (PRAVASTATIN SODIUM) [Suspect]
     Indication: DRUG USE FOR UNKNOWN INDICATION
     Dosage: ORAL
     Route: 048
  4. PREVISCAN (20 MG, TALBET) (FLUINDIONE) [Suspect]
     Indication: DRUG USE FOR UNKNOWN INDICATION
     Dosage: 0.5 DOSAGE FORM EVERY TWO DAYS AND 3/4 DOSAGE FORM THE OTHER DAY ORAL
     Route: 048
  5. KARDEGIC (75 MG, POWDER FOR ORAL SOLUTION) (ACETYLSALICYLATE LYSINE) [Suspect]
     Indication: DRUG USE FOR UNKNOWN INDICATION
     Dosage: 1 DOSAGE FORM
  6. RAMIPRIL [Concomitant]
  7. BISOPROLOL FUMARATE [Concomitant]
  8. LASIX [Concomitant]

REACTIONS (12)
  - ACUTE PULMONARY OEDEMA [None]
  - BLOOD PRESSURE INCREASED [None]
  - BRAIN DEATH [None]
  - BRAIN HERNIATION [None]
  - COMA [None]
  - DRUG INTERACTION [None]
  - HAEMORRHAGIC STROKE [None]
  - INTERNATIONAL NORMALISED RATIO INCREASED [None]
  - MENINGORRHAGIA [None]
  - OVERDOSE [None]
  - OXYGEN SATURATION DECREASED [None]
  - RENAL FAILURE [None]
